FAERS Safety Report 5904277-2 (Version None)
Quarter: 2008Q3

REPORT INFORMATION
  Report Type: 
  Country: None (occurrence: None)
  Receive Date: 20080909
  Receipt Date: 20080422
  Transmission Date: 20090109
  Serious: Yes (Hospitalization)
  Sender: FDA-Public Use
  Company Number: 163-20785-08031638

PATIENT
  Age: 37 Year
  Sex: Female

DRUGS (8)
  1. THALOMID [Suspect]
     Indication: BEHCET'S SYNDROME
     Dosage: 50 MG, 1 IN 1 D, ORAL
     Route: 048
     Dates: start: 20080131
  2. HYDROCHLOROTHIAZIDE [Concomitant]
  3. LISINOPRIL [Concomitant]
  4. EFFEXOR [Concomitant]
  5. FENTANYL-100 [Concomitant]
  6. PERCOCET [Concomitant]
  7. PROTONIX [Concomitant]
  8. XANAX [Concomitant]

REACTIONS (1)
  - PULMONARY EMBOLISM [None]
